FAERS Safety Report 8255694-X (Version None)
Quarter: 2012Q2

REPORT INFORMATION
  Report Type: 
  Country: None (occurrence: None)
  Receive Date: 20120403
  Receipt Date: 20120403
  Transmission Date: 20120825
  Serious: No
  Sender: FDA-Public Use
  Company Number: None

PATIENT
  Age: 57 Year
  Sex: Male

DRUGS (2)
  1. VYVANSE [Suspect]
     Indication: ATTENTION DEFICIT/HYPERACTIVITY DISORDER
     Dosage: 70 MG
     Route: 048
     Dates: start: 20120101, end: 20120310
  2. ZOLPIDEM [Concomitant]

REACTIONS (5)
  - CAPSULE PHYSICAL ISSUE [None]
  - DRUG EFFECT DECREASED [None]
  - PRODUCT QUALITY ISSUE [None]
  - FATIGUE [None]
  - FEELING ABNORMAL [None]
